FAERS Safety Report 7011030-8 (Version None)
Quarter: 2010Q3

REPORT INFORMATION
  Report Type: 
  Country: None (occurrence: None)
  Receive Date: 20100923
  Receipt Date: 20090109
  Transmission Date: 20110219
  Serious: Yes (Hospitalization)
  Sender: FDA-Public Use
  Company Number: US-WYE-H07050708

PATIENT
  Sex: Female
  Weight: 73.09 kg

DRUGS (5)
  1. ZOSYN [Suspect]
     Indication: PREOPERATIVE CARE
     Dosage: 3.375 GRAM
     Route: 042
     Dates: start: 20081203, end: 20081203
  2. METRONIDAZOLE [Concomitant]
     Dosage: UNKNOWN
     Route: 042
     Dates: end: 20081202
  3. PROTONIX [Concomitant]
     Route: 048
     Dates: end: 20081202
  4. MAGNESIUM [Concomitant]
     Dates: end: 20081202
  5. SODIUM BICARBONATE [Concomitant]
     Route: 048
     Dates: end: 20081202

REACTIONS (1)
  - ANAPHYLACTIC REACTION [None]
